FAERS Safety Report 24971078 (Version 3)
Quarter: 2025Q1

REPORT INFORMATION
  Report Type: Spontaneous
  Country: FR (occurrence: FR)
  Receive Date: 20250214
  Receipt Date: 20250303
  Transmission Date: 20250409
  Serious: Yes (Hospitalization)
  Sender: MYLAN
  Company Number: None

PATIENT
  Age: 78 Year
  Sex: Male
  Weight: 63 kg

DRUGS (80)
  1. ATORVASTATIN [Suspect]
     Active Substance: ATORVASTATIN
     Indication: Prophylaxis
     Dosage: 80 MILLIGRAM, QD
     Dates: start: 20250113, end: 20250120
  2. ATORVASTATIN [Suspect]
     Active Substance: ATORVASTATIN
     Dosage: 80 MILLIGRAM, QD
     Route: 048
     Dates: start: 20250113, end: 20250120
  3. ATORVASTATIN [Suspect]
     Active Substance: ATORVASTATIN
     Dosage: 80 MILLIGRAM, QD
     Route: 048
     Dates: start: 20250113, end: 20250120
  4. ATORVASTATIN [Suspect]
     Active Substance: ATORVASTATIN
     Dosage: 80 MILLIGRAM, QD
     Dates: start: 20250113, end: 20250120
  5. PERINDOPRIL [Suspect]
     Active Substance: PERINDOPRIL
     Indication: Hypertension
     Dosage: 2.5 MILLIGRAM, QD
     Dates: start: 20250114, end: 20250120
  6. PERINDOPRIL [Suspect]
     Active Substance: PERINDOPRIL
     Dosage: 2.5 MILLIGRAM, QD
     Route: 048
     Dates: start: 20250114, end: 20250120
  7. PERINDOPRIL [Suspect]
     Active Substance: PERINDOPRIL
     Dosage: 2.5 MILLIGRAM, QD
     Route: 048
     Dates: start: 20250114, end: 20250120
  8. PERINDOPRIL [Suspect]
     Active Substance: PERINDOPRIL
     Dosage: 2.5 MILLIGRAM, QD
     Dates: start: 20250114, end: 20250120
  9. VISIPAQUE [Suspect]
     Active Substance: IODIXANOL
     Indication: Angiocardiogram
     Dates: start: 20250113, end: 20250113
  10. VISIPAQUE [Suspect]
     Active Substance: IODIXANOL
     Dates: start: 20250113, end: 20250113
  11. VISIPAQUE [Suspect]
     Active Substance: IODIXANOL
     Route: 013
     Dates: start: 20250113, end: 20250113
  12. VISIPAQUE [Suspect]
     Active Substance: IODIXANOL
     Route: 013
     Dates: start: 20250113, end: 20250113
  13. VISIPAQUE [Suspect]
     Active Substance: IODIXANOL
     Dates: start: 20250115, end: 20250115
  14. VISIPAQUE [Suspect]
     Active Substance: IODIXANOL
     Dates: start: 20250115, end: 20250115
  15. VISIPAQUE [Suspect]
     Active Substance: IODIXANOL
     Route: 013
     Dates: start: 20250115, end: 20250115
  16. VISIPAQUE [Suspect]
     Active Substance: IODIXANOL
     Route: 013
     Dates: start: 20250115, end: 20250115
  17. PROTAMINE [Suspect]
     Active Substance: PROTAMINE
     Indication: Angiocardiogram
     Dates: start: 20250115, end: 20250115
  18. PROTAMINE [Suspect]
     Active Substance: PROTAMINE
     Route: 042
     Dates: start: 20250115, end: 20250115
  19. PROTAMINE [Suspect]
     Active Substance: PROTAMINE
     Route: 042
     Dates: start: 20250115, end: 20250115
  20. PROTAMINE [Suspect]
     Active Substance: PROTAMINE
     Dates: start: 20250115, end: 20250115
  21. TICAGRELOR [Suspect]
     Active Substance: TICAGRELOR
     Indication: Myocardial infarction
     Dosage: 2 DOSAGE FORM, QD
     Dates: start: 20250113, end: 20250117
  22. TICAGRELOR [Suspect]
     Active Substance: TICAGRELOR
     Dosage: 2 DOSAGE FORM, QD
     Route: 048
     Dates: start: 20250113, end: 20250117
  23. TICAGRELOR [Suspect]
     Active Substance: TICAGRELOR
     Dosage: 2 DOSAGE FORM, QD
     Route: 048
     Dates: start: 20250113, end: 20250117
  24. TICAGRELOR [Suspect]
     Active Substance: TICAGRELOR
     Dosage: 2 DOSAGE FORM, QD
     Dates: start: 20250113, end: 20250117
  25. XYLOCAINE [Suspect]
     Active Substance: LIDOCAINE HYDROCHLORIDE
     Indication: Product used for unknown indication
     Dates: start: 20250115, end: 20250115
  26. XYLOCAINE [Suspect]
     Active Substance: LIDOCAINE HYDROCHLORIDE
     Dates: start: 20250115, end: 20250115
  27. XYLOCAINE [Suspect]
     Active Substance: LIDOCAINE HYDROCHLORIDE
     Route: 058
     Dates: start: 20250115, end: 20250115
  28. XYLOCAINE [Suspect]
     Active Substance: LIDOCAINE HYDROCHLORIDE
     Route: 058
     Dates: start: 20250115, end: 20250115
  29. XYLOCAINE [Suspect]
     Active Substance: LIDOCAINE HYDROCHLORIDE
     Dates: start: 20250113, end: 20250113
  30. XYLOCAINE [Suspect]
     Active Substance: LIDOCAINE HYDROCHLORIDE
     Dates: start: 20250113, end: 20250113
  31. XYLOCAINE [Suspect]
     Active Substance: LIDOCAINE HYDROCHLORIDE
     Route: 058
     Dates: start: 20250113, end: 20250113
  32. XYLOCAINE [Suspect]
     Active Substance: LIDOCAINE HYDROCHLORIDE
     Route: 058
     Dates: start: 20250113, end: 20250113
  33. XYLOCAINE [Concomitant]
     Active Substance: LIDOCAINE HYDROCHLORIDE
     Indication: Angiocardiogram
     Dates: start: 20250113, end: 20250113
  34. XYLOCAINE [Concomitant]
     Active Substance: LIDOCAINE HYDROCHLORIDE
     Dates: start: 20250113, end: 20250113
  35. XYLOCAINE [Concomitant]
     Active Substance: LIDOCAINE HYDROCHLORIDE
     Route: 058
     Dates: start: 20250113, end: 20250113
  36. XYLOCAINE [Concomitant]
     Active Substance: LIDOCAINE HYDROCHLORIDE
     Route: 058
     Dates: start: 20250113, end: 20250113
  37. XYLOCAINE [Concomitant]
     Active Substance: LIDOCAINE HYDROCHLORIDE
     Dates: start: 20250115, end: 20250115
  38. XYLOCAINE [Concomitant]
     Active Substance: LIDOCAINE HYDROCHLORIDE
     Dates: start: 20250115, end: 20250115
  39. XYLOCAINE [Concomitant]
     Active Substance: LIDOCAINE HYDROCHLORIDE
     Route: 058
     Dates: start: 20250115, end: 20250115
  40. XYLOCAINE [Concomitant]
     Active Substance: LIDOCAINE HYDROCHLORIDE
     Route: 058
     Dates: start: 20250115, end: 20250115
  41. KARDEGIC [Concomitant]
     Active Substance: ASPIRIN DL-LYSINE
     Indication: Myocardial infarction
     Dosage: 1 DOSAGE FORM, QD (POWDER FOR ORAL SOLUTION IN SACHET-DOSE)
     Dates: start: 20250113, end: 20250122
  42. KARDEGIC [Concomitant]
     Active Substance: ASPIRIN DL-LYSINE
     Dosage: 1 DOSAGE FORM, QD (POWDER FOR ORAL SOLUTION IN SACHET-DOSE)
     Route: 048
     Dates: start: 20250113, end: 20250122
  43. KARDEGIC [Concomitant]
     Active Substance: ASPIRIN DL-LYSINE
     Dosage: 1 DOSAGE FORM, QD (POWDER FOR ORAL SOLUTION IN SACHET-DOSE)
     Route: 048
     Dates: start: 20250113, end: 20250122
  44. KARDEGIC [Concomitant]
     Active Substance: ASPIRIN DL-LYSINE
     Dosage: 1 DOSAGE FORM, QD (POWDER FOR ORAL SOLUTION IN SACHET-DOSE)
     Dates: start: 20250113, end: 20250122
  45. HEPARIN [Concomitant]
     Active Substance: HEPARIN SODIUM
     Dates: start: 20250113, end: 20250113
  46. HEPARIN [Concomitant]
     Active Substance: HEPARIN SODIUM
     Dates: start: 20250113, end: 20250113
  47. HEPARIN [Concomitant]
     Active Substance: HEPARIN SODIUM
     Route: 013
     Dates: start: 20250113, end: 20250113
  48. HEPARIN [Concomitant]
     Active Substance: HEPARIN SODIUM
     Route: 013
     Dates: start: 20250113, end: 20250113
  49. HEPARIN [Concomitant]
     Active Substance: HEPARIN SODIUM
     Dates: start: 20250113, end: 20250113
  50. HEPARIN [Concomitant]
     Active Substance: HEPARIN SODIUM
     Dates: start: 20250113, end: 20250113
  51. HEPARIN [Concomitant]
     Active Substance: HEPARIN SODIUM
     Route: 042
     Dates: start: 20250113, end: 20250113
  52. HEPARIN [Concomitant]
     Active Substance: HEPARIN SODIUM
     Route: 042
     Dates: start: 20250113, end: 20250113
  53. VERAPAMIL HYDROCHLORIDE [Concomitant]
     Active Substance: VERAPAMIL HYDROCHLORIDE
     Dates: start: 20250113, end: 20250113
  54. VERAPAMIL HYDROCHLORIDE [Concomitant]
     Active Substance: VERAPAMIL HYDROCHLORIDE
     Route: 013
     Dates: start: 20250113, end: 20250113
  55. VERAPAMIL HYDROCHLORIDE [Concomitant]
     Active Substance: VERAPAMIL HYDROCHLORIDE
     Route: 013
     Dates: start: 20250113, end: 20250113
  56. VERAPAMIL HYDROCHLORIDE [Concomitant]
     Active Substance: VERAPAMIL HYDROCHLORIDE
     Dates: start: 20250113, end: 20250113
  57. ISOSORBIDE [Concomitant]
     Active Substance: ISOSORBIDE
     Dates: start: 20250113, end: 20250113
  58. ISOSORBIDE [Concomitant]
     Active Substance: ISOSORBIDE
     Route: 013
     Dates: start: 20250113, end: 20250113
  59. ISOSORBIDE [Concomitant]
     Active Substance: ISOSORBIDE
     Route: 013
     Dates: start: 20250113, end: 20250113
  60. ISOSORBIDE [Concomitant]
     Active Substance: ISOSORBIDE
     Dates: start: 20250113, end: 20250113
  61. LANSOPRAZOLE [Concomitant]
     Active Substance: LANSOPRAZOLE
     Dosage: 15 MILLIGRAM, QD
     Dates: start: 20250115, end: 20250122
  62. LANSOPRAZOLE [Concomitant]
     Active Substance: LANSOPRAZOLE
     Dosage: 15 MILLIGRAM, QD
     Route: 048
     Dates: start: 20250115, end: 20250122
  63. LANSOPRAZOLE [Concomitant]
     Active Substance: LANSOPRAZOLE
     Dosage: 15 MILLIGRAM, QD
     Route: 048
     Dates: start: 20250115, end: 20250122
  64. LANSOPRAZOLE [Concomitant]
     Active Substance: LANSOPRAZOLE
     Dosage: 15 MILLIGRAM, QD
     Dates: start: 20250115, end: 20250122
  65. BISOPROLOL FUMARATE [Concomitant]
     Active Substance: BISOPROLOL FUMARATE
     Dosage: 5 MILLIGRAM, QD
  66. BISOPROLOL FUMARATE [Concomitant]
     Active Substance: BISOPROLOL FUMARATE
     Dosage: 5 MILLIGRAM, QD
     Route: 048
  67. BISOPROLOL FUMARATE [Concomitant]
     Active Substance: BISOPROLOL FUMARATE
     Dosage: 5 MILLIGRAM, QD
     Route: 048
  68. BISOPROLOL FUMARATE [Concomitant]
     Active Substance: BISOPROLOL FUMARATE
     Dosage: 5 MILLIGRAM, QD
  69. ASPIRIN DL-LYSINE [Concomitant]
     Active Substance: ASPIRIN DL-LYSINE
     Dosage: 250 MILLIGRAM, QD
     Dates: start: 20250113, end: 20250113
  70. ASPIRIN DL-LYSINE [Concomitant]
     Active Substance: ASPIRIN DL-LYSINE
     Dosage: 250 MILLIGRAM, QD
     Route: 042
     Dates: start: 20250113, end: 20250113
  71. ASPIRIN DL-LYSINE [Concomitant]
     Active Substance: ASPIRIN DL-LYSINE
     Dosage: 250 MILLIGRAM, QD
     Route: 042
     Dates: start: 20250113, end: 20250113
  72. ASPIRIN DL-LYSINE [Concomitant]
     Active Substance: ASPIRIN DL-LYSINE
     Dosage: 250 MILLIGRAM, QD
     Dates: start: 20250113, end: 20250113
  73. RAMIPRIL [Concomitant]
     Active Substance: RAMIPRIL
     Dosage: 2.5 MILLIGRAM, QD
     Dates: start: 20250113, end: 20250114
  74. RAMIPRIL [Concomitant]
     Active Substance: RAMIPRIL
     Dosage: 2.5 MILLIGRAM, QD
     Route: 048
     Dates: start: 20250113, end: 20250114
  75. RAMIPRIL [Concomitant]
     Active Substance: RAMIPRIL
     Dosage: 2.5 MILLIGRAM, QD
     Route: 048
     Dates: start: 20250113, end: 20250114
  76. RAMIPRIL [Concomitant]
     Active Substance: RAMIPRIL
     Dosage: 2.5 MILLIGRAM, QD
     Dates: start: 20250113, end: 20250114
  77. HEPARIN [Concomitant]
     Active Substance: HEPARIN SODIUM
  78. HEPARIN [Concomitant]
     Active Substance: HEPARIN SODIUM
     Route: 065
  79. HEPARIN [Concomitant]
     Active Substance: HEPARIN SODIUM
     Route: 065
  80. HEPARIN [Concomitant]
     Active Substance: HEPARIN SODIUM

REACTIONS (2)
  - Eosinophilia [Not Recovered/Not Resolved]
  - Rash [Recovering/Resolving]

NARRATIVE: CASE EVENT DATE: 20250115
